FAERS Safety Report 5863565-9 (Version None)
Quarter: 2008Q3

REPORT INFORMATION
  Report Type: 
  Country: None (occurrence: None)
  Receive Date: 20080828
  Receipt Date: 20080819
  Transmission Date: 20090109
  Serious: No
  Sender: FDA-Public Use
  Company Number: US-BOEHRINGER INGELHEIM GMBH, GERMANY-2008-BP-11710BP

PATIENT
  Sex: Male

DRUGS (7)
  1. DULCOLAX [Suspect]
     Indication: CONSTIPATION
     Dates: start: 20080721
  2. TERAZOSIN HCL [Concomitant]
     Indication: BLOOD PRESSURE
  3. METOPROLOL TARTRATE [Concomitant]
     Indication: BLOOD PRESSURE
  4. PRILOSEC [Concomitant]
     Indication: STOMACH DISCOMFORT
  5. HYDROCODONE BITARTRATE [Concomitant]
     Indication: PAIN
  6. MORPHINE [Concomitant]
     Indication: PAIN
  7. MIRALAX [Concomitant]

REACTIONS (2)
  - DRUG INEFFECTIVE [None]
  - MUSCLE SPASMS [None]
